FAERS Safety Report 10573426 (Version 1)
Quarter: 2014Q4

REPORT INFORMATION
  Report Type: Spontaneous
  Country: US (occurrence: US)
  Receive Date: 20141110
  Receipt Date: 20141110
  Transmission Date: 20150529
  Serious: Yes (Disabling)
  Sender: FDA-Public Use
  Company Number: US-MERCK-1411USA000993

PATIENT
  Sex: Female

DRUGS (1)
  1. ZOCOR [Suspect]
     Active Substance: SIMVASTATIN
     Indication: BLOOD CHOLESTEROL INCREASED
     Dosage: UNK
     Route: 048
     Dates: start: 2007, end: 20120209

REACTIONS (11)
  - Insomnia [Recovered/Resolved]
  - Alopecia [Recovered/Resolved]
  - Traumatic lung injury [Recovered/Resolved]
  - Brain compression [Recovered/Resolved]
  - Osteoporosis [Recovered/Resolved]
  - Myalgia [Recovered/Resolved]
  - Weight increased [Recovered/Resolved]
  - Dyspnoea [Recovered/Resolved]
  - Amnesia [Recovered/Resolved]
  - Organising pneumonia [Recovered/Resolved]
  - Gait disturbance [Recovered/Resolved]
